FAERS Safety Report 8539332-4 (Version None)
Quarter: 2012Q3

REPORT INFORMATION
  Report Type: 
  Country: None (occurrence: None)
  Receive Date: 20120726
  Receipt Date: 20110725
  Transmission Date: 20120928
  Serious: No
  Sender: FDA-Public Use
  Company Number: US-ASTRAZENECA-2011SE44537

PATIENT
  Age: 41 Year
  Sex: Male
  Weight: 86.2 kg

DRUGS (8)
  1. NEURTOIN [Concomitant]
     Indication: NEURALGIA
  2. METHADONE HYDROCHLORIDE [Concomitant]
     Indication: BREAKTHROUGH PAIN
  3. OXYCODONE HCL [Concomitant]
     Indication: PAIN
  4. CLONOPIN [Concomitant]
     Indication: PANIC ATTACK
  5. SEROQUEL XR [Suspect]
     Indication: BIPOLAR DISORDER
     Route: 048
  6. PROZAC [Concomitant]
     Indication: BIPOLAR DISORDER
  7. SEROQUEL XR [Suspect]
     Indication: OBSESSIVE-COMPULSIVE DISORDER
     Route: 048
  8. PROZAC [Concomitant]
     Indication: OBSESSIVE-COMPULSIVE DISORDER

REACTIONS (1)
  - PANIC ATTACK [None]
